FAERS Safety Report 23603496 (Version 1)
Quarter: 2024Q1

REPORT INFORMATION
  Report Type: Spontaneous
  Country: SI (occurrence: SI)
  Receive Date: 20240307
  Receipt Date: 20240307
  Transmission Date: 20240410
  Serious: Yes (Other)
  Sender: FDA-Public Use
  Company Number: SI-BoehringerIngelheim-2024-BI-012248

PATIENT
  Age: 76 Year
  Sex: Male

DRUGS (12)
  1. JARDIANCE [Suspect]
     Active Substance: EMPAGLIFLOZIN
     Indication: Product used for unknown indication
  2. METFORMIN HYDROCHLORIDE [Concomitant]
     Active Substance: METFORMIN HYDROCHLORIDE
     Indication: Product used for unknown indication
     Dates: start: 20230221
  3. INSULIN GLARGINE [Concomitant]
     Active Substance: INSULIN GLARGINE
     Indication: Product used for unknown indication
     Dosage: 18 UNITE
  4. DOXAZOSIN MESYLATE [Concomitant]
     Active Substance: DOXAZOSIN MESYLATE
     Indication: Product used for unknown indication
     Dates: start: 20230221
  5. BISOPROLOL FUMARATE [Concomitant]
     Active Substance: BISOPROLOL FUMARATE
     Indication: Product used for unknown indication
     Dosage: IN THE MORNING.
     Dates: start: 20240215
  6. HYDROCHLOROTHIAZIDE\TELMISARTAN [Concomitant]
     Active Substance: HYDROCHLOROTHIAZIDE\TELMISARTAN
     Indication: Product used for unknown indication
     Dosage: 40/12.5 MG IN THE MORNING
     Dates: start: 20230523
  7. TELASSMO [Concomitant]
     Indication: Product used for unknown indication
     Dosage: 40/5 MG IN THE EVENING
     Dates: start: 20230523
  8. LASIX [Concomitant]
     Active Substance: FUROSEMIDE
     Indication: Product used for unknown indication
     Dosage: 20 MG EVERY OTHER DAY
     Dates: start: 20230221
  9. ROSUVASTATIN CALCIUM [Concomitant]
     Active Substance: ROSUVASTATIN CALCIUM
     Indication: Product used for unknown indication
     Dosage: IN THE EVENING
     Dates: start: 20230928
  10. XARELTO [Concomitant]
     Active Substance: RIVAROXABAN
     Indication: Product used for unknown indication
     Dosage: IN THE MORNING
     Dates: start: 20230221
  11. ACETAMINOPHEN [Concomitant]
     Active Substance: ACETAMINOPHEN
     Indication: Pain management
  12. Analgin [Concomitant]
     Indication: Pain management

REACTIONS (4)
  - Aortic stenosis [Unknown]
  - Coronary artery stenosis [Unknown]
  - Genital tract inflammation [Unknown]
  - Genital tract inflammation [Unknown]

NARRATIVE: CASE EVENT DATE: 20240201
